FAERS Safety Report 20875341 (Version 2)
Quarter: 2022Q3

REPORT INFORMATION
  Report Type: Report from Study
  Country: CA (occurrence: CA)
  Receive Date: 20220526
  Receipt Date: 20220804
  Transmission Date: 20221027
  Serious: Yes (Other)
  Sender: FDA-Public Use
  Company Number: CA-ABBVIE-22K-028-4407778-00

PATIENT
  Age: 61 Year
  Sex: Male
  Weight: 94.432 kg

DRUGS (18)
  1. SKYRIZI [Suspect]
     Active Substance: RISANKIZUMAB-RZAA
     Indication: Psoriasis
     Route: 058
     Dates: start: 20200115, end: 20220408
  2. SKYRIZI [Suspect]
     Active Substance: RISANKIZUMAB-RZAA
     Route: 058
     Dates: start: 20220518
  3. TYLENOL [Concomitant]
     Active Substance: ACETAMINOPHEN
     Indication: Pain management
     Dosage: FREQUENCY: AS REQUIRED
     Route: 048
     Dates: start: 20210201
  4. HYDROMORPHONE [Concomitant]
     Active Substance: HYDROMORPHONE
     Indication: Pain management
     Dosage: FREQUENCY: AS REQUIRED
     Route: 048
     Dates: start: 20210329
  5. PREDNISONE [Concomitant]
     Active Substance: PREDNISONE
     Indication: Dermatitis exfoliative generalised
     Route: 048
     Dates: start: 20200212
  6. PREDNISONE [Concomitant]
     Active Substance: PREDNISONE
     Dates: start: 20210222
  7. HYDROXYZINE [Concomitant]
     Active Substance: HYDROXYZINE HYDROCHLORIDE
     Indication: Dermatitis exfoliative generalised
     Dosage: FREQUENCY: AS REQUIRED
     Route: 048
     Dates: start: 20210826
  8. CEFTRIAXONE [Concomitant]
     Active Substance: CEFTRIAXONE
     Indication: Product used for unknown indication
     Route: 042
  9. SULFATRIM [Concomitant]
     Active Substance: SULFAMETHOXAZOLE\TRIMETHOPRIM
     Indication: Product used for unknown indication
     Route: 042
  10. KENALOG [Concomitant]
     Active Substance: TRIAMCINOLONE ACETONIDE
     Indication: Product used for unknown indication
     Dosage: AS REQUIRED
     Dates: start: 20200401
  11. CLOTRIMAZOLE [Concomitant]
     Active Substance: CLOTRIMAZOLE
     Indication: Product used for unknown indication
     Dosage: AS REQUIRED
     Dates: start: 20200401
  12. CLOBETASOL [Concomitant]
     Active Substance: CLOBETASOL
     Indication: Product used for unknown indication
     Dates: start: 20200519
  13. AVEENO [Concomitant]
     Active Substance: DIMETHICONE\HOMOSALATE\OCTINOXATE\OCTISALATE\TITANIUM DIOXIDE
     Indication: Product used for unknown indication
     Dosage: FREQUENCY: AS REQUIRED
     Dates: start: 20200101
  14. DERMA SMOOTHE [Concomitant]
     Indication: Product used for unknown indication
     Dosage: FREQUENCY: AS REQUIRED
     Dates: start: 20200212
  15. BETAMETHASONE VALERATE [Concomitant]
     Active Substance: BETAMETHASONE VALERATE
     Indication: Product used for unknown indication
     Dosage: FREQUENCY: AS REQUIRED
     Dates: start: 20200513
  16. ATORVASTATIN [Concomitant]
     Active Substance: ATORVASTATIN
     Indication: Hyperlipidaemia
     Dates: start: 2013
  17. NORTRIPTYLINE [Concomitant]
     Active Substance: NORTRIPTYLINE
     Indication: Depression
     Dates: start: 20200731
  18. ASPIRIN [Concomitant]
     Active Substance: ASPIRIN
     Indication: Thrombosis prophylaxis
     Dates: start: 20210329

REACTIONS (10)
  - Knee arthroplasty [Recovered/Resolved]
  - Hip arthroplasty [Unknown]
  - Knee arthroplasty [Recovering/Resolving]
  - Post procedural infection [Recovering/Resolving]
  - Staphylococcal infection [Unknown]
  - Gastrooesophageal reflux disease [Not Recovered/Not Resolved]
  - Benign prostatic hyperplasia [Not Recovered/Not Resolved]
  - Arthralgia [Not Recovered/Not Resolved]
  - Arthritis infective [Not Recovered/Not Resolved]
  - Arthralgia [Not Recovered/Not Resolved]

NARRATIVE: CASE EVENT DATE: 20200501
